FAERS Safety Report 22087491 (Version 1)
Quarter: 2023Q1

REPORT INFORMATION
  Report Type: Spontaneous
  Country: DK (occurrence: DK)
  Receive Date: 20230313
  Receipt Date: 20230313
  Transmission Date: 20230417
  Serious: Yes (Other)
  Sender: FDA-Public Use
  Company Number: DK-NOVOPROD-1034686

PATIENT
  Age: 62 Year
  Weight: 86.5 kg

DRUGS (5)
  1. OZEMPIC [Suspect]
     Active Substance: SEMAGLUTIDE
     Indication: Obesity
     Dosage: 1 MG, QW
     Route: 058
  2. OZEMPIC [Suspect]
     Active Substance: SEMAGLUTIDE
     Indication: Diabetes mellitus
     Dosage: 0.5 MG, QW
     Route: 058
     Dates: start: 202112
  3. OLUMIANT [Concomitant]
     Active Substance: BARICITINIB
     Indication: Arthritis
     Dosage: 4 MG, QD
  4. METHOTREXATE [Concomitant]
     Active Substance: METHOTREXATE
     Indication: Arthritis
     Dosage: 2.5 MG 10 TABLETS X 1 WEEK
  5. HYDROXYCHLOROQUINE SULFATE [Concomitant]
     Active Substance: HYDROXYCHLOROQUINE SULFATE
     Indication: Arthritis
     Dosage: 200 MG, QD

REACTIONS (1)
  - Alanine aminotransferase increased [Recovered/Resolved]

NARRATIVE: CASE EVENT DATE: 20220101
